FAERS Safety Report 4436139-4 (Version None)
Quarter: 2004Q3

REPORT INFORMATION
  Report Type: 
  Country: None (occurrence: None)
  Receive Date: 20040830
  Receipt Date: 20040823
  Transmission Date: 20050211
  Serious: Yes (Hospitalization)
  Sender: FDA-Public Use
  Company Number: DE-JNJFOC-20040807413

PATIENT
  Age: 38 Year
  Sex: Female

DRUGS (7)
  1. REMICADE [Suspect]
     Route: 042
  2. REMICADE [Suspect]
     Route: 042
  3. REMICADE [Suspect]
     Route: 042
  4. REMICADE [Suspect]
     Indication: RHEUMATOID ARTHRITIS
     Route: 042
  5. PREDNISOLONE [Suspect]
     Indication: DRUG USE FOR UNKNOWN INDICATION
     Route: 049
  6. METHOTREXATE [Suspect]
     Indication: DRUG USE FOR UNKNOWN INDICATION
  7. CELEBREX [Concomitant]

REACTIONS (4)
  - CERVICITIS [None]
  - DRUG INTERACTION [None]
  - GASTROENTERITIS [None]
  - PERITONITIS [None]
